FAERS Safety Report 7423096-1 (Version None)
Quarter: 2011Q2

REPORT INFORMATION
  Report Type: 
  Country: None (occurrence: None)
  Receive Date: 20110411
  Receipt Date: 20110331
  Transmission Date: 20111010
  Serious: Yes (Hospitalization)
  Sender: FDA-Public Use
  Company Number: 882253

PATIENT
  Age: 74 Year
  Sex: Female
  Weight: 64 kg

DRUGS (10)
  1. PREGABALIN [Concomitant]
  2. FLUCONAZOLE [Concomitant]
  3. PREDNISOLONE [Concomitant]
  4. NYSTATIN [Concomitant]
  5. (ONDANSETRON) [Concomitant]
  6. METOCLOPRAMIDE [Concomitant]
  7. DOCETAXEL [Suspect]
     Indication: BREAST CANCER
     Dosage: 80 MG/M 2 MILLIGRAM(S) /SQ. METER,
     Dates: start: 20101101, end: 20110201
  8. (DOXORUBICIN) [Concomitant]
  9. (DEXAMETHASONE DIPROPIONATE) [Concomitant]
  10. (CYCLOPHOSPHAMIDE) [Concomitant]

REACTIONS (7)
  - PERIPHERAL SENSORIMOTOR NEUROPATHY [None]
  - BONE PAIN [None]
  - GENERALISED OEDEMA [None]
  - MYALGIA [None]
  - EPISTAXIS [None]
  - DIARRHOEA [None]
  - RASH [None]
